FAERS Safety Report 8069411-X (Version None)
Quarter: 2012Q1

REPORT INFORMATION
  Report Type: 
  Country: None (occurrence: None)
  Receive Date: 20120119
  Receipt Date: 20120106
  Transmission Date: 20120608
  Serious: Yes (Hospitalization)
  Sender: FDA-Public Use
  Company Number: JPI-P-018474

PATIENT
  Age: 42 Year
  Sex: Female
  Weight: 61.2356 kg

DRUGS (6)
  1. VITAMIN D [Suspect]
     Indication: VITAMIN SUPPLEMENTATION
     Dosage: (10000 IU), ORAL
     Route: 048
     Dates: end: 20110901
  2. GABAPENTIN [Concomitant]
  3. PROGESTERONE [Concomitant]
  4. XYREM [Suspect]
     Indication: CATAPLEXY
     Dosage: 3 GM (1.5 GM, 2 IN 1 D), ORAL, 7.5 GM (3.75 GM, 2 IN 1 D), ORAL
     Route: 048
     Dates: start: 20110408
  5. XYREM [Suspect]
     Indication: CATAPLEXY
     Dosage: 3 GM (1.5 GM, 2 IN 1 D), ORAL, 7.5 GM (3.75 GM, 2 IN 1 D), ORAL
     Route: 048
     Dates: start: 20110325, end: 20110101
  6. PROMETHAZINE [Concomitant]

REACTIONS (11)
  - NAUSEA [None]
  - MUSCLE SPASMS [None]
  - GASTROENTERITIS VIRAL [None]
  - HYPOXIA [None]
  - VOMITING [None]
  - IMPAIRED GASTRIC EMPTYING [None]
  - HYPERVITAMINOSIS [None]
  - DECREASED APPETITE [None]
  - DYSPNOEA [None]
  - ANAEMIA [None]
  - DISEASE RECURRENCE [None]
